FAERS Safety Report 5981889-1 (Version None)
Quarter: 2008Q4

REPORT INFORMATION
  Report Type: 
  Country: None (occurrence: None)
  Receive Date: 20081205
  Receipt Date: 20081128
  Transmission Date: 20090506
  Serious: Yes (Other)
  Sender: FDA-Public Use
  Company Number: DE-MERCK-0810DEU00077

PATIENT
  Age: 35 Year
  Sex: Female

DRUGS (6)
  1. JANUVIA [Suspect]
     Indication: DIABETES MELLITUS
     Route: 048
     Dates: start: 20080125, end: 20080901
  2. METFORMIN [Concomitant]
     Indication: DIABETES MELLITUS
     Route: 048
     Dates: end: 20080901
  3. ZETIA [Concomitant]
     Route: 048
  4. BISOPROLOL [Concomitant]
     Route: 065
  5. VENLAFAXINE HYDROCHLORIDE [Concomitant]
     Route: 048
  6. JANUMET [Suspect]
     Indication: DIABETES MELLITUS
     Route: 048
     Dates: start: 20080901, end: 20081101

REACTIONS (2)
  - LIVER FUNCTION TEST ABNORMAL [None]
  - THERAPEUTIC PRODUCT INEFFECTIVE [None]
